FAERS Safety Report 25451206 (Version 1)
Quarter: 2025Q2

REPORT INFORMATION
  Report Type: Spontaneous
  Country: US (occurrence: None)
  Receive Date: 20250618
  Receipt Date: 20250618
  Transmission Date: 20250717
  Serious: Yes (Death)
  Sender: FDA-CTU
  Company Number: None

PATIENT
  Age: 59 Year
  Sex: Male
  Weight: 65.1 kg

DRUGS (10)
  1. PROMACTA [Suspect]
     Active Substance: ELTROMBOPAG OLAMINE
  2. JAKAFI [Suspect]
     Active Substance: RUXOLITINIB
  3. GABAPENTIN [Suspect]
     Active Substance: GABAPENTIN
  4. PANTOPRAZOLE SODIUM [Suspect]
     Active Substance: PANTOPRAZOLE SODIUM
  5. URSODIOL [Suspect]
     Active Substance: URSODIOL
  6. ACYCLOVIR [Suspect]
     Active Substance: ACYCLOVIR
  7. BUMETANIDE [Suspect]
     Active Substance: BUMETANIDE
  8. MAGNESIUM [Suspect]
     Active Substance: MAGNESIUM
  9. TACROLIMUS [Suspect]
     Active Substance: TACROLIMUS
  10. SILDENAFIL [Suspect]
     Active Substance: SILDENAFIL

REACTIONS (1)
  - Death [None]

NARRATIVE: CASE EVENT DATE: 20250618
